FAERS Safety Report 4732896-8 (Version None)
Quarter: 2005Q3

REPORT INFORMATION
  Report Type: 
  Country: None (occurrence: None)
  Receive Date: 20050803
  Receipt Date: 20050502
  Transmission Date: 20060218
  Serious: No
  Sender: FDA-Public Use
  Company Number: US-GLAXOSMITHKLINE-A0556920A

PATIENT
  Age: 82 Year
  Sex: Female

DRUGS (6)
  1. AVANDAMET [Suspect]
     Dosage: 1TAB TWICE PER DAY
     Route: 048
     Dates: start: 20050201
  2. LIPITOR [Concomitant]
  3. NEURONTIN [Concomitant]
  4. PHENOBARBITAL [Concomitant]
     Route: 065
  5. AMARYL [Concomitant]
  6. LISINOPRIL [Concomitant]

REACTIONS (2)
  - CYSTITIS [None]
  - DYSURIA [None]
